FAERS Safety Report 8130954-1 (Version None)
Quarter: 2012Q1

REPORT INFORMATION
  Report Type: 
  Country: None (occurrence: None)
  Receive Date: 20120213
  Receipt Date: 20120210
  Transmission Date: 20120608
  Serious: No
  Sender: FDA-Public Use
  Company Number: US-PFIZER INC-2012037146

PATIENT
  Sex: Male
  Weight: 87.075 kg

DRUGS (3)
  1. CHANTIX [Suspect]
     Indication: SMOKING CESSATION THERAPY
     Dosage: 0.5 MG, 1X/DAY
     Route: 048
     Dates: start: 20090101, end: 20090101
  2. ZOCOR [Concomitant]
     Indication: BLOOD CHOLESTEROL INCREASED
     Dosage: UNK
  3. CHANTIX [Suspect]
     Dosage: UNK
     Route: 048
     Dates: start: 20090101, end: 20090101

REACTIONS (2)
  - NAUSEA [None]
  - MALAISE [None]
